FAERS Safety Report 9798272 (Version 1)
Quarter: 2014Q1

REPORT INFORMATION
  Report Type: Spontaneous
  Country: US (occurrence: None)
  Receive Date: 20140103
  Receipt Date: 20140103
  Transmission Date: 20141002
  Serious: Yes (Hospitalization, Disabling)
  Sender: FDA-Public Use
  Company Number: None

PATIENT
  Age: 5 Year
  Sex: Male

DRUGS (1)
  1. SINGULAIR [Suspect]
     Indication: ASTHMA
     Dosage: 1/DAY ONCE DAILY TAKEN BY MOUTH
     Route: 048

REACTIONS (4)
  - Neurological symptom [None]
  - Tic [None]
  - Hyperkinesia [None]
  - Immune system disorder [None]
